FAERS Safety Report 7279079-8 (Version None)
Quarter: 2011Q1

REPORT INFORMATION
  Report Type: 
  Country: None (occurrence: None)
  Receive Date: 20110207
  Receipt Date: 20110203
  Transmission Date: 20110831
  Serious: Yes (Death)
  Sender: FDA-Public Use
  Company Number: PHHY2011BR08858

PATIENT
  Sex: Male

DRUGS (1)
  1. DIOVAN AMLO FIX [Suspect]
     Indication: HYPERTENSION
     Dosage: VALSARTAN 160MG AND AMLODIPINE 5MG (1 TABLET A DAY )
     Route: 048

REACTIONS (2)
  - INFARCTION [None]
  - BLOOD PRESSURE INCREASED [None]
